FAERS Safety Report 9732879 (Version 2)
Quarter: 2013Q4

REPORT INFORMATION
  Report Type: Spontaneous
  Country: US (occurrence: US)
  Receive Date: 20131204
  Receipt Date: 20131204
  Transmission Date: 20140711
  Serious: No
  Sender: FDA-Public Use
  Company Number: US-GILEAD-2009-0021277

PATIENT
  Sex: Male

DRUGS (25)
  1. LETAIRIS [Suspect]
     Indication: PULMONARY ARTERIAL HYPERTENSION
     Route: 048
     Dates: start: 20090304
  2. METOPROLOL [Concomitant]
  3. LIPITOR [Concomitant]
  4. DIGOXIN [Concomitant]
  5. FUROSEMIDE [Concomitant]
  6. ALLOPURINOL [Concomitant]
  7. TEMAZEPAM [Concomitant]
  8. GEMFIBROZIL [Concomitant]
  9. TYLENOL [Concomitant]
  10. METOLAZONE [Concomitant]
  11. PLAVIX [Concomitant]
  12. BENICAR [Concomitant]
  13. NITROQUICK [Concomitant]
  14. ASPIRIN FREE [Concomitant]
  15. FLUTICASONE [Concomitant]
  16. SPIRIVA [Concomitant]
  17. COMBIVENT [Concomitant]
  18. LANTUS [Concomitant]
  19. CITRUCEL [Concomitant]
  20. STRESS [Concomitant]
  21. GLIPIZIDE ER [Concomitant]
  22. MOBIC [Concomitant]
  23. FLOMAX [Concomitant]
  24. RANITIDINE [Concomitant]
  25. CALCIUM [Concomitant]

REACTIONS (2)
  - Fluid retention [Not Recovered/Not Resolved]
  - Oedema [Not Recovered/Not Resolved]
